FAERS Safety Report 16874631 (Version 1)
Quarter: 2019Q4

REPORT INFORMATION
  Report Type: Spontaneous
  Country: US (occurrence: US)
  Receive Date: 20191001
  Receipt Date: 20191001
  Transmission Date: 20200122
  Serious: No
  Sender: FDA-Public Use
  Company Number: US-IBSA PHARMA-TSO-2019-0063

PATIENT
  Age: 66 Year
  Sex: Female

DRUGS (1)
  1. TIROSINT-SOL [Suspect]
     Active Substance: LEVOTHYROXINE SODIUM
     Indication: AUTOIMMUNE THYROIDITIS
     Dosage: 75MCG/ML DAILY
     Route: 048
     Dates: start: 201903

REACTIONS (6)
  - Drug level above therapeutic [Unknown]
  - Muscle spasms [Unknown]
  - Diarrhoea [Unknown]
  - Feeling hot [Unknown]
  - Frequent bowel movements [Unknown]
  - Tremor [Unknown]

NARRATIVE: CASE EVENT DATE: 2019
